FAERS Safety Report 5457964-7 (Version None)
Quarter: 2007Q3

REPORT INFORMATION
  Report Type: 
  Country: None (occurrence: None)
  Receive Date: 20070917
  Receipt Date: 20070906
  Transmission Date: 20080115
  Serious: Yes (Hospitalization)
  Sender: FDA-Public Use
  Company Number: 2007SP017991

PATIENT
  Age: 47 Year
  Sex: Female

DRUGS (2)
  1. PEG-INTRON (PEGINTERFERON ALFA-2B) [Suspect]
     Indication: HEPATITIS C
     Dates: start: 20070607, end: 20070721
  2. REBETOL [Suspect]
     Indication: HEPATITIS C
     Dosage: PO
     Route: 048
     Dates: start: 20070607, end: 20070721

REACTIONS (3)
  - HAEMATURIA [None]
  - HYPERSENSITIVITY [None]
  - PNEUMONIA [None]
